FAERS Safety Report 25925563 (Version 1)
Quarter: 2025Q4

REPORT INFORMATION
  Report Type: Spontaneous
  Country: US (occurrence: None)
  Receive Date: 20251014
  Receipt Date: 20251014
  Transmission Date: 20260118
  Serious: Yes (Hospitalization)
  Sender: FDA-CTU
  Company Number: None

PATIENT
  Age: 92 Year
  Sex: Female
  Weight: 66.22 kg

DRUGS (17)
  1. FORTEO [Suspect]
     Active Substance: TERIPARATIDE
     Indication: Osteoporosis
     Route: 058
     Dates: start: 20250108
  2. ELIQUIS [Concomitant]
     Active Substance: APIXABAN
  3. BETAMETHASONE DIPROPIONAT [Concomitant]
  4. VITAMIN D3 1,000UNIT CAPSULES [Concomitant]
  5. HYDROXYZINE HCL 25MG TABS (WHITE} [Concomitant]
  6. ACETAMINOPHEN 500MG TABLETS [Concomitant]
  7. ACETAMINOPHEN 500MG TABLETS [Concomitant]
  8. TRIAMCINOLONE 0.025% CREAM 15GM [Concomitant]
  9. OMEPRAZOLE [Concomitant]
     Active Substance: OMEPRAZOLE
  10. MELATONIN 1MG TABLETS [Concomitant]
  11. ROPINIROLE 1 MG TABLETS [Concomitant]
  12. ASPIRIN 61MG CHEWABLE TABLETS [Concomitant]
  13. FUROSEMlDE 40MG TABLETS [Concomitant]
  14. MAGNESIUM 250MG TABLETS [Concomitant]
  15. MEMANTINE [Concomitant]
     Active Substance: MEMANTINE
  16. MIRALAX 3350 POWDER PACKETS [Concomitant]
  17. ELIQUIS [Suspect]
     Active Substance: APIXABAN

REACTIONS (2)
  - Gastrointestinal haemorrhage [None]
  - Therapy interrupted [None]

NARRATIVE: CASE EVENT DATE: 20251008
